FAERS Safety Report 9229160 (Version 1)
Quarter: 2013Q2

REPORT INFORMATION
  Report Type: Spontaneous
  Country: US (occurrence: US)
  Receive Date: 20130412
  Receipt Date: 20130412
  Transmission Date: 20140414
  Serious: No
  Sender: FDA-Public Use
  Company Number: US-009507513-1304USA004727

PATIENT
  Age: 28 Year
  Sex: Female
  Weight: 118.82 kg

DRUGS (1)
  1. IMPLANON [Suspect]
     Indication: CONTRACEPTION
     Dosage: 1 DF, UNK
     Dates: start: 201011

REACTIONS (5)
  - Complication of device removal [Unknown]
  - Medical device complication [Unknown]
  - Medical device complication [Unknown]
  - Device deployment issue [Unknown]
  - Device dislocation [Unknown]
